FAERS Safety Report 4974950-1 (Version None)
Quarter: 2006Q2

REPORT INFORMATION
  Report Type: 
  Country: None (occurrence: None)
  Receive Date: 20060414
  Receipt Date: 20060414
  Transmission Date: 20061013
  Serious: Yes (Other)
  Sender: FDA-Public Use
  Company Number: None

PATIENT
  Sex: Female
  Weight: 52.3 kg

DRUGS (2)
  1. TAXOTERE [Suspect]
     Indication: UTERINE CANCER
     Dosage: 102 MG
     Dates: start: 20060130, end: 20060213
  2. GEMCITABINE [Suspect]
     Dosage: 1764 MG
     Dates: start: 20060130, end: 20060213

REACTIONS (15)
  - ABDOMINAL DISTENSION [None]
  - ANAEMIA [None]
  - ASTHENIA [None]
  - BLOOD PRESSURE SYSTOLIC DECREASED [None]
  - DYSPNOEA [None]
  - FATIGUE [None]
  - FLUID INTAKE REDUCED [None]
  - HEART RATE INCREASED [None]
  - HYPOVENTILATION [None]
  - OCCULT BLOOD POSITIVE [None]
  - ORAL INTAKE REDUCED [None]
  - PLATELET COUNT DECREASED [None]
  - RECTAL EXAMINATION ABNORMAL [None]
  - RESPIRATORY RATE INCREASED [None]
  - WHITE BLOOD CELL COUNT DECREASED [None]
